FAERS Safety Report 5589453-3 (Version None)
Quarter: 2008Q1

REPORT INFORMATION
  Report Type: 
  Country: None (occurrence: None)
  Receive Date: 20080109
  Receipt Date: 20080109
  Transmission Date: 20080703
  Serious: Yes (Life-Threatening, Hospitalization)
  Sender: FDA-Public Use
  Company Number: None

PATIENT
  Age: 81 Year
  Sex: Male

DRUGS (2)
  1. MIDAZOLAM HCL [Suspect]
     Indication: COLONOSCOPY
     Dosage: 3MG ONCE IV
     Route: 042
     Dates: start: 20071129, end: 20071129
  2. MEPERIDINE HCL [Suspect]
     Indication: COLONOSCOPY
     Dosage: 50MG ONCE IV
     Route: 042
     Dates: start: 20071129, end: 20071129

REACTIONS (3)
  - CONFUSIONAL STATE [None]
  - RESPIRATORY DEPRESSION [None]
  - SEDATION [None]
